FAERS Safety Report 9249553 (Version 1)
Quarter: 2013Q2

REPORT INFORMATION
  Report Type: Spontaneous
  Country: BR (occurrence: BR)
  Receive Date: 20130423
  Receipt Date: 20130423
  Transmission Date: 20140414
  Serious: Yes (Other)
  Sender: FDA-Public Use
  Company Number: BR-009507513-1304BRA013230

PATIENT
  Age: 39 Year
  Sex: Female
  Weight: 70 kg

DRUGS (4)
  1. NUVARING [Suspect]
     Indication: CONTRACEPTION
     Dosage: UNK
     Route: 067
     Dates: start: 20120625
  2. CENTRUM (MINERALS (UNSPECIFIED) (+) VITAMINS (UNSPECIFIED)) [Concomitant]
     Indication: VITAMIN SUPPLEMENTATION
     Dosage: UNK UNK, UNKNOWN
     Route: 048
     Dates: start: 201110
  3. CITONEURIN [Concomitant]
     Indication: VITAMIN SUPPLEMENTATION
     Dosage: UNK UNK, UNKNOWN
     Route: 048
     Dates: start: 201203
  4. PANTOGAR (AMINOBENZOIC ACID (+) CALCIUM PANTOTHENATE (+) CYSTINE (+) K [Concomitant]
     Indication: ALOPECIA
     Dosage: UNK, UNKNOWN
     Route: 048
     Dates: start: 201301

REACTIONS (4)
  - Abdominoplasty [Recovered/Resolved]
  - Metrorrhagia [Recovered/Resolved]
  - Drug administration error [Unknown]
  - Drug administration error [Unknown]
